FAERS Safety Report 13008969 (Version 1)
Quarter: 2016Q4

REPORT INFORMATION
  Report Type: Spontaneous
  Country: US (occurrence: US)
  Receive Date: 20161208
  Receipt Date: 20161208
  Transmission Date: 20170207
  Serious: Yes (Other)
  Sender: FDA-Public Use
  Company Number: US-AMGEN-USASP2016170556

PATIENT

DRUGS (20)
  1. HERCEPTIN [Interacting]
     Active Substance: TRASTUZUMAB
     Indication: BREAST CANCER
     Dosage: UNK, Q3WK
     Route: 065
     Dates: start: 201603, end: 201606
  2. HERCEPTIN [Interacting]
     Active Substance: TRASTUZUMAB
     Indication: METASTASES TO LYMPH NODES
  3. HERCEPTIN [Interacting]
     Active Substance: TRASTUZUMAB
     Indication: HER-2 POSITIVE BREAST CANCER
  4. TAMOXIFEN [Interacting]
     Active Substance: TAMOXIFEN
     Indication: METASTASES TO LYMPH NODES
  5. PERJETA [Interacting]
     Active Substance: PERTUZUMAB
     Indication: BREAST CANCER
     Dosage: UNK, Q3WK
     Route: 065
     Dates: start: 201610
  6. DOCETAXEL. [Interacting]
     Active Substance: DOCETAXEL
     Indication: BREAST CANCER
     Dosage: UNK, Q3WK
     Route: 065
     Dates: start: 201603, end: 201606
  7. TAXOL [Interacting]
     Active Substance: PACLITAXEL
     Indication: BREAST CANCER
     Dosage: UNK, QWK (TWO WEEKS IN A ROW WITH A WEEK BREAK)
     Route: 065
     Dates: start: 201610
  8. NEULASTA [Suspect]
     Active Substance: PEGFILGRASTIM
     Indication: WHITE BLOOD CELL COUNT DECREASED
     Dosage: UNK, Q3WK
     Route: 065
     Dates: start: 201603, end: 2016
  9. TAMOXIFEN [Interacting]
     Active Substance: TAMOXIFEN
     Indication: HER-2 POSITIVE BREAST CANCER
  10. DOCETAXEL. [Interacting]
     Active Substance: DOCETAXEL
     Indication: METASTASES TO LYMPH NODES
  11. DOCETAXEL. [Interacting]
     Active Substance: DOCETAXEL
     Indication: HER-2 POSITIVE BREAST CANCER
  12. TAXOL [Interacting]
     Active Substance: PACLITAXEL
     Indication: HER-2 POSITIVE BREAST CANCER
  13. CARBOPLATIN. [Interacting]
     Active Substance: CARBOPLATIN
     Indication: BREAST CANCER
     Dosage: UNK, Q3WK
     Route: 065
     Dates: start: 201603, end: 201606
  14. NEUPOGEN [Suspect]
     Active Substance: FILGRASTIM
     Indication: WHITE BLOOD CELL COUNT DECREASED
     Dosage: UNK, AFTER CHEMO (TWO OR THREE DAYS IN A ROW AFTER CHEMO)
     Route: 065
     Dates: start: 2016
  15. TAXOL [Interacting]
     Active Substance: PACLITAXEL
     Indication: METASTASES TO LYMPH NODES
  16. CARBOPLATIN. [Interacting]
     Active Substance: CARBOPLATIN
     Indication: METASTASES TO LYMPH NODES
  17. CARBOPLATIN. [Interacting]
     Active Substance: CARBOPLATIN
     Indication: HER-2 POSITIVE BREAST CANCER
  18. TAMOXIFEN [Interacting]
     Active Substance: TAMOXIFEN
     Indication: BREAST CANCER
     Dosage: UNK
     Route: 065
     Dates: start: 201606, end: 201610
  19. PERJETA [Interacting]
     Active Substance: PERTUZUMAB
     Indication: METASTASES TO LYMPH NODES
  20. PERJETA [Interacting]
     Active Substance: PERTUZUMAB
     Indication: HER-2 POSITIVE BREAST CANCER

REACTIONS (6)
  - Breast cancer recurrent [Unknown]
  - Hepatic enzyme increased [Unknown]
  - Metastases to lymph nodes [Unknown]
  - Drug interaction [Unknown]
  - Drug clearance decreased [Unknown]
  - Metastases to lung [Not Recovered/Not Resolved]

NARRATIVE: CASE EVENT DATE: 2016
